FAERS Safety Report 17185857 (Version 4)
Quarter: 2020Q1

REPORT INFORMATION
  Report Type: Report from Study
  Country: US (occurrence: US)
  Receive Date: 20191220
  Receipt Date: 20200130
  Transmission Date: 20200409
  Serious: Yes (Hospitalization)
  Sender: FDA-Public Use
  Company Number: US-MALLINCKRODT-T201908799

PATIENT
  Age: 32 Year
  Sex: Male

DRUGS (2)
  1. REPOSITORY CORTICOTROPIN INJECTION [Suspect]
     Active Substance: CORTICOTROPIN
     Indication: PROTEINURIA
  2. REPOSITORY CORTICOTROPIN INJECTION [Suspect]
     Active Substance: CORTICOTROPIN
     Indication: NEPHROTIC SYNDROME
     Dosage: 80 UNITS, TWICE WEEKLY
     Route: 058
     Dates: start: 20191108, end: 201912

REACTIONS (5)
  - Diabetic complication [Recovering/Resolving]
  - Hypersensitivity [Recovering/Resolving]
  - Pain in extremity [Not Recovered/Not Resolved]
  - Neuropathy peripheral [Not Recovered/Not Resolved]
  - Diabetes mellitus [Not Recovered/Not Resolved]

NARRATIVE: CASE EVENT DATE: 20191126
